FAERS Safety Report 5941013-8 (Version None)
Quarter: 2008Q4

REPORT INFORMATION
  Report Type: 
  Country: None (occurrence: None)
  Receive Date: 20081104
  Receipt Date: 20081029
  Transmission Date: 20090506
  Serious: Yes (Hospitalization, Other)
  Sender: FDA-Public Use
  Company Number: PHHY2008FR26722

PATIENT
  Age: 4 Year
  Sex: Male

DRUGS (4)
  1. TEGRETOL [Suspect]
     Indication: ELECTROENCEPHALOGRAM ABNORMAL
     Dosage: 300MG
     Dates: start: 20080804
  2. TEGRETOL [Suspect]
     Dosage: 800MG/DA
     Dates: start: 20080816
  3. TEGRETOL [Suspect]
     Dosage: 1000 MG, QD
     Dates: start: 20080922, end: 20081003
  4. RIVOTRIL [Concomitant]
     Indication: ABNORMAL BEHAVIOUR
     Dosage: UNK
     Dates: start: 20080731, end: 20080903

REACTIONS (15)
  - BRONCHOSPASM [None]
  - COUGH [None]
  - EOSINOPHILIA [None]
  - EYELID OEDEMA [None]
  - FACE OEDEMA [None]
  - GENERALISED OEDEMA [None]
  - INFLAMMATION [None]
  - LYMPHOCYTOSIS [None]
  - MONOCYTOSIS [None]
  - PYREXIA [None]
  - RASH ERYTHEMATOUS [None]
  - RHINITIS [None]
  - SKIN EXFOLIATION [None]
  - THROMBOCYTHAEMIA [None]
  - TOXIC SKIN ERUPTION [None]
